FAERS Safety Report 8009200-5 (Version None)
Quarter: 2011Q4

REPORT INFORMATION
  Report Type: 
  Country: None (occurrence: None)
  Receive Date: 20111227
  Receipt Date: 20111220
  Transmission Date: 20120403
  Serious: Yes (Other)
  Sender: FDA-Public Use
  Company Number: US-PFIZER INC-2011309882

PATIENT
  Sex: Male
  Weight: 99.773 kg

DRUGS (4)
  1. GEODON [Suspect]
     Indication: SCHIZOAFFECTIVE DISORDER
     Dosage: 80 MG, 2X/DAY
  2. GEODON [Suspect]
     Dosage: 80 MG, 3X/DAY
  3. KLONOPIN [Concomitant]
     Dosage: 1 MG, 1X/DAY
  4. ACETAMINOPHEN [Concomitant]
     Indication: ARTHRALGIA
     Dosage: UNK

REACTIONS (4)
  - DYSARTHRIA [None]
  - EYELID PTOSIS [None]
  - CONFUSIONAL STATE [None]
  - DYSKINESIA [None]
